FAERS Safety Report 7238234-3 (Version None)
Quarter: 2011Q1

REPORT INFORMATION
  Report Type: 
  Country: None (occurrence: None)
  Receive Date: 20110121
  Receipt Date: 20110118
  Transmission Date: 20110831
  Serious: Yes (Other)
  Sender: FDA-Public Use
  Company Number: US-PFIZER INC-2011012411

PATIENT

DRUGS (1)
  1. TORISEL [Suspect]
     Indication: GASTRITIS
     Dosage: 25 MG, UNK

REACTIONS (1)
  - GASTRITIS [None]
